FAERS Safety Report 6198493-5 (Version None)
Quarter: 2009Q2

REPORT INFORMATION
  Report Type: 
  Country: None (occurrence: None)
  Receive Date: 20090521
  Receipt Date: 20090514
  Transmission Date: 20091009
  Serious: Yes (Other)
  Sender: FDA-Public Use
  Company Number: PHHY2009DE18640

PATIENT
  Sex: Female

DRUGS (3)
  1. ACLASTA [Suspect]
     Indication: OSTEOPOROSIS
     Dosage: 5 MG, UNK
     Dates: start: 20090403, end: 20090403
  2. CALCIUM SANDOZ [Concomitant]
  3. NOVAMINSULFON [Concomitant]

REACTIONS (2)
  - ARRHYTHMIA [None]
  - CATHETERISATION CARDIAC [None]
